FAERS Safety Report 15650736 (Version 2)
Quarter: 2018Q4

REPORT INFORMATION
  Report Type: Spontaneous
  Country: IT (occurrence: IT)
  Receive Date: 20181123
  Receipt Date: 20181224
  Transmission Date: 20190205
  Serious: Yes (Other)
  Sender: FDA-Public Use
  Company Number: IT-AUROBINDO-AUR-APL-2018-055592

PATIENT
  Age: 61 Year
  Sex: Female

DRUGS (4)
  1. BEVACIZUMAB. [Suspect]
     Active Substance: BEVACIZUMAB
     Indication: OVARIAN CANCER STAGE III
     Dosage: UNK, CYCLIC [EVERY 3 WEEKS FOR 6 CYCLES (PART OF INDUCTION CHEMOTHERAPY)]
     Route: 065
  2. BEVACIZUMAB. [Suspect]
     Active Substance: BEVACIZUMAB
     Dosage: UNK (PART OF MAINTENANCE CHEMOTHERAPY)
     Route: 065
  3. PACLITAXEL. [Suspect]
     Active Substance: PACLITAXEL
     Indication: OVARIAN CANCER STAGE III
     Dosage: UNK, CYCLIC [EVERY 3 WEEKS FOR 6 CYCLES (PART OF INDUCTION CHEMOTHERAPY)]
     Route: 065
  4. CARBOPLATIN. [Suspect]
     Active Substance: CARBOPLATIN
     Indication: OVARIAN CANCER STAGE III
     Dosage: UNK, CYCLIC [EVERY 3 WEEKS FOR 6 CYCLES (PART OF INDUCTION CHEMOTHERAPY)]
     Route: 065

REACTIONS (4)
  - Ascites [Unknown]
  - Lymphadenopathy [Unknown]
  - Carbohydrate antigen 125 increased [Unknown]
  - Neuropathy peripheral [Not Recovered/Not Resolved]
